FAERS Safety Report 14368629 (Version 2)
Quarter: 2019Q1

REPORT INFORMATION
  Report Type: Spontaneous
  Country: MA (occurrence: MA)
  Receive Date: 20180109
  Receipt Date: 20190102
  Transmission Date: 20190417
  Serious: Yes (Other)
  Sender: FDA-Public Use
  Company Number: MA-ALLERGAN-1774354US

PATIENT
  Age: 48 Year
  Sex: Male

DRUGS (1)
  1. ZYMAXID [Suspect]
     Active Substance: GATIFLOXACIN
     Indication: ANTIBIOTIC THERAPY
     Route: 047

REACTIONS (1)
  - Ulcerative keratitis [Unknown]
